FAERS Safety Report 4429700-4 (Version None)
Quarter: 2004Q3

REPORT INFORMATION
  Report Type: 
  Country: None (occurrence: None)
  Receive Date: 20040816
  Receipt Date: 20040803
  Transmission Date: 20050211
  Serious: Yes (Other)
  Sender: FDA-Public Use
  Company Number: 2004053835

PATIENT
  Sex: 0

DRUGS (1)
  1. ATARAX [Suspect]
     Indication: ILL-DEFINED DISORDER

REACTIONS (1)
  - INJECTION SITE NECROSIS [None]
